FAERS Safety Report 24750762 (Version 1)
Quarter: 2024Q4

REPORT INFORMATION
  Report Type: Spontaneous
  Country: US (occurrence: None)
  Receive Date: 20241218
  Receipt Date: 20241218
  Transmission Date: 20250115
  Serious: Yes (Hospitalization)
  Sender: ENCUBE ETHICALS
  Company Number: US-Encube-001459

PATIENT
  Age: 9 Year
  Sex: Male

DRUGS (3)
  1. MOMETASONE [Suspect]
     Active Substance: MOMETASONE
     Indication: Rosacea
     Dosage: USED FOR ABOUT 45 DAYS
  2. AZITHROMYCIN [Suspect]
     Active Substance: AZITHROMYCIN
     Indication: Erythema
     Dosage: TOOK ONE DOSE
     Route: 048
  3. METRONIDAZOLE [Suspect]
     Active Substance: METRONIDAZOLE
     Indication: Erythema
     Dosage: APPLIED ONCE

REACTIONS (4)
  - Dermatitis acneiform [Recovering/Resolving]
  - Product use issue [Unknown]
  - Overdose [Unknown]
  - Drug ineffective [Unknown]
